FAERS Safety Report 7953647-X (Version None)
Quarter: 2011Q4

REPORT INFORMATION
  Report Type: 
  Country: None (occurrence: None)
  Receive Date: 20111202
  Receipt Date: 20111126
  Transmission Date: 20120403
  Serious: Yes (Other)
  Sender: FDA-Public Use
  Company Number: US-CEPHALON-US008742

PATIENT
  Sex: Male

DRUGS (2)
  1. GABITRIL [Suspect]
     Indication: CONVULSION
  2. NOT REPORTED [Concomitant]

REACTIONS (1)
  - STATUS EPILEPTICUS [None]
